FAERS Safety Report 16016632 (Version 1)
Quarter: 2019Q1

REPORT INFORMATION
  Report Type: Spontaneous
  Country: BR (occurrence: BR)
  Receive Date: 20190228
  Receipt Date: 20190228
  Transmission Date: 20190418
  Serious: Yes (Hospitalization, Other)
  Sender: FDA-Public Use
  Company Number: BR-GLAXOSMITHKLINE-BR2019GSK033224

PATIENT
  Sex: Male
  Weight: 10 kg

DRUGS (6)
  1. NORIPURUM [Concomitant]
     Active Substance: IRON POLYMALTOSE
     Indication: ASTHMA
     Dosage: UNK
     Route: 048
     Dates: start: 20190214
  2. CLARITHROMYCIN. [Concomitant]
     Active Substance: CLARITHROMYCIN
     Indication: ASTHMA
     Dosage: 2.5 ML, BID
     Route: 048
     Dates: start: 20190214
  3. AEROLIN [Suspect]
     Active Substance: ALBUTEROL
     Indication: ASTHMA
     Dosage: 6 PUFF(S), QD
     Route: 055
  4. BUSONID [Concomitant]
     Active Substance: BUDESONIDE
     Indication: ASTHMA
     Dosage: UNK
     Route: 055
     Dates: start: 20190214
  5. SERETIDE [Suspect]
     Active Substance: FLUTICASONE PROPIONATE\SALMETEROL XINAFOATE
     Indication: ASTHMA
     Dosage: 1 PUFF(S), BID
     Route: 055
     Dates: start: 20190220
  6. DESLORATADINE. [Concomitant]
     Active Substance: DESLORATADINE
     Indication: ASTHMA
     Dosage: 3 ML, QD
     Route: 048
     Dates: start: 20190214

REACTIONS (3)
  - Product prescribing issue [Recovered/Resolved]
  - Hospitalisation [Unknown]
  - Product administered to patient of inappropriate age [Not Recovered/Not Resolved]
